FAERS Safety Report 19012834 (Version 1)
Quarter: 2021Q1

REPORT INFORMATION
  Report Type: Spontaneous
  Country: US (occurrence: US)
  Receive Date: 20210316
  Receipt Date: 20210316
  Transmission Date: 20210420
  Serious: Yes (Disabling)
  Sender: FDA-Public Use
  Company Number: None

PATIENT
  Age: 74 Year
  Sex: Female
  Weight: 69.85 kg

DRUGS (14)
  1. PRAVASTATIN 10MG [Suspect]
     Active Substance: PRAVASTATIN
     Indication: BLOOD CHOLESTEROL INCREASED
     Dosage: ?          QUANTITY:1 DF DOSAGE FORM;?
     Route: 048
     Dates: start: 20201204
  2. MULTIVITAMIN [Concomitant]
     Active Substance: VITAMINS
  3. TYLENOL [Concomitant]
     Active Substance: ACETAMINOPHEN
  4. GENTEAL MILD [Concomitant]
     Active Substance: HYPROMELLOSE 2910 (4000 MPA.S)
  5. SIMVASTATIN 20MG [Suspect]
     Active Substance: SIMVASTATIN
     Indication: BLOOD CHOLESTEROL INCREASED
     Dosage: ?          QUANTITY:1 DF DOSAGE FORM;?
     Route: 048
     Dates: start: 201606, end: 20200909
  6. PRESERVISION AREDS 2 [Concomitant]
     Active Substance: MINERALS\VITAMINS
  7. MIRALAX [Concomitant]
     Active Substance: POLYETHYLENE GLYCOL 3350
  8. FISH OIL [Concomitant]
     Active Substance: FISH OIL
  9. ALEVE [Concomitant]
     Active Substance: NAPROXEN SODIUM
  10. VITAMIN D3 [Concomitant]
     Active Substance: CHOLECALCIFEROL
  11. REFRESH [Concomitant]
     Active Substance: UNSPECIFIED INGREDIENT
  12. CALTRATE [Concomitant]
     Active Substance: CALCIUM CARBONATE
  13. ALLEGRA [Concomitant]
     Active Substance: FEXOFENADINE HYDROCHLORIDE
  14. FLONASE [Concomitant]
     Active Substance: FLUTICASONE PROPIONATE

REACTIONS (7)
  - Constipation [None]
  - Meniscus injury [None]
  - Arthritis [None]
  - Muscle spasms [None]
  - Cough [None]
  - Pain in extremity [None]
  - Arthralgia [None]

NARRATIVE: CASE EVENT DATE: 20190413
